FAERS Safety Report 15983223 (Version 15)
Quarter: 2019Q4

REPORT INFORMATION
  Report Type: Spontaneous
  Country: DE (occurrence: DE)
  Receive Date: 20190220
  Receipt Date: 20191112
  Transmission Date: 20200122
  Serious: Yes (Hospitalization, Other)
  Sender: FDA-Public Use
  Company Number: PHHY2019DE036107

PATIENT
  Sex: Female
  Weight: 80 kg

DRUGS (11)
  1. PRADAXA [Concomitant]
     Active Substance: DABIGATRAN ETEXILATE MESYLATE
     Indication: PRODUCT USED FOR UNKNOWN INDICATION
     Dosage: 150 MG, BID (APPROXIMATELY STARTED IN 2015)
     Route: 065
  2. VALSARTAN HEXAL [Suspect]
     Active Substance: VALSARTAN
     Indication: PRODUCT USED FOR UNKNOWN INDICATION
     Dosage: 1 DF, QD (160/2,5 MG)
     Route: 065
     Dates: start: 20150901, end: 20180320
  3. GRANUFINK FEMINA [Concomitant]
     Indication: PRODUCT USED FOR UNKNOWN INDICATION
     Dosage: UNK
     Route: 065
  4. CODIOVAN [Concomitant]
     Active Substance: HYDROCHLOROTHIAZIDE\VALSARTAN
     Indication: PRODUCT USED FOR UNKNOWN INDICATION
     Dosage: 1 DF, QD (IN THE MORNING)
     Route: 065
  5. VALSARTAN. [Suspect]
     Active Substance: VALSARTAN
     Indication: PRODUCT USED FOR UNKNOWN INDICATION
     Dosage: 80 OT, UNK
     Route: 065
     Dates: start: 20150527
  6. PANTOPRAZOL HEXAL [Concomitant]
     Active Substance: PANTOPRAZOLE
     Indication: PRODUCT USED FOR UNKNOWN INDICATION
     Dosage: 40 MG, QD
     Route: 065
  7. NOVAMINSULFON-RATIOPHARM [Concomitant]
     Active Substance: METAMIZOLE
     Indication: PRODUCT USED FOR UNKNOWN INDICATION
     Dosage: 500 MG, PRN (UP TO 2 TABLETS 4TIMES PER DAY)
     Route: 065
  8. AMLODIPIN 1 A PHARMA [Concomitant]
     Active Substance: AMLODIPINE BESYLATE
     Indication: PRODUCT USED FOR UNKNOWN INDICATION
     Dosage: 5 MG, QD (MORNING) (APPROXIMATELY STARTED IN 2000)
     Route: 065
  9. VALSARTAN HEXAL COMP [Suspect]
     Active Substance: HYDROCHLOROTHIAZIDE\VALSARTAN
     Indication: PRODUCT USED FOR UNKNOWN INDICATION
     Dosage: 1 DF (160 MG, 12.5 MG), QD
     Route: 065
  10. CANDESARTAN. [Concomitant]
     Active Substance: CANDESARTAN
     Indication: PRODUCT USED FOR UNKNOWN INDICATION
     Dosage: UNK
     Route: 065
  11. AMLODIPINE [Concomitant]
     Active Substance: AMLODIPINE BESYLATE
     Indication: PRODUCT USED FOR UNKNOWN INDICATION
     Dosage: 5 MG, QD
     Route: 065

REACTIONS (19)
  - Spinal osteoarthritis [Unknown]
  - Allergic reaction to excipient [Unknown]
  - Hepatic steatosis [Unknown]
  - Diverticulum intestinal [Unknown]
  - Haematochezia [Unknown]
  - Hyperuricaemia [Unknown]
  - Renal cyst [Unknown]
  - Hypersensitivity [Unknown]
  - Haemorrhage [Unknown]
  - Rectal adenocarcinoma [Unknown]
  - Rash erythematous [Not Recovered/Not Resolved]
  - Goitre [Unknown]
  - Intestinal haemorrhage [Recovered/Resolved]
  - Granuloma [Unknown]
  - Urinary incontinence [Unknown]
  - Proctitis [Unknown]
  - Cardiomegaly [Unknown]
  - Haemorrhoids [Unknown]
  - Dyspnoea exertional [Unknown]

NARRATIVE: CASE EVENT DATE: 201801
